FAERS Safety Report 9730375 (Version 1)
Quarter: 2013Q4

REPORT INFORMATION
  Report Type: Spontaneous
  Country: IS (occurrence: IS)
  Receive Date: 20131204
  Receipt Date: 20131204
  Transmission Date: 20140711
  Serious: Yes (Death, Hospitalization)
  Sender: FDA-Public Use
  Company Number: IS-ROCHE-1310077

PATIENT
  Age: 72 Year
  Sex: Female
  Weight: 73 kg

DRUGS (3)
  1. XELODA [Suspect]
     Indication: BREAST CANCER
     Route: 065
     Dates: start: 20131029, end: 20131111
  2. IMOVANE [Concomitant]
     Route: 065
  3. NAVELBINE [Concomitant]
     Dosage: 10 MG/ML CONCENTRATE FOE SOLUTION
     Route: 065
     Dates: start: 20131105, end: 20131105

REACTIONS (12)
  - Acute myocardial infarction [Fatal]
  - Atrial fibrillation [Fatal]
  - Diarrhoea haemorrhagic [Not Recovered/Not Resolved]
  - Leukopenia [Not Recovered/Not Resolved]
  - Neutropenia [Not Recovered/Not Resolved]
  - Thrombocytopenia [Not Recovered/Not Resolved]
  - Mucosal inflammation [Not Recovered/Not Resolved]
  - Colitis [Not Recovered/Not Resolved]
  - Vomiting [Not Recovered/Not Resolved]
  - Diarrhoea [Not Recovered/Not Resolved]
  - Confusional state [Not Recovered/Not Resolved]
  - Nausea [Not Recovered/Not Resolved]
